FAERS Safety Report 23154579 (Version 2)
Quarter: 2023Q4

REPORT INFORMATION
  Report Type: Spontaneous
  Country: GB (occurrence: GB)
  Receive Date: 20231107
  Receipt Date: 20231117
  Transmission Date: 20240110
  Serious: Yes (Hospitalization)
  Sender: FDA-Public Use
  Company Number: GB-MYLANLABS-2022M1092977

PATIENT
  Age: 46 Year
  Sex: Female

DRUGS (2)
  1. CLOZARIL [Suspect]
     Active Substance: CLOZAPINE
     Indication: Schizophrenia
     Dosage: 300 MILLIGRAM, QD
     Route: 048
     Dates: start: 20220816
  2. CLOZARIL [Suspect]
     Active Substance: CLOZAPINE
     Dosage: 1000 MILLIGRAM, QD
     Route: 048
     Dates: start: 20231030, end: 20231030

REACTIONS (4)
  - Overdose [Unknown]
  - Haemoglobin increased [Unknown]
  - Eosinophilia [Unknown]
  - Leukocytosis [Unknown]

NARRATIVE: CASE EVENT DATE: 20220908
